FAERS Safety Report 19986639 (Version 3)
Quarter: 2021Q4

REPORT INFORMATION
  Report Type: Report from Study
  Country: TW (occurrence: TW)
  Receive Date: 20211022
  Receipt Date: 20211115
  Transmission Date: 20220303
  Serious: Yes (Hospitalization)
  Sender: FDA-Public Use
  Company Number: TW-BIOGEN-2021BI01058664

PATIENT
  Age: 7 Month
  Sex: Male

DRUGS (2)
  1. SPINRAZA [Suspect]
     Active Substance: NUSINERSEN
     Indication: Spinal muscular atrophy
     Dosage: 4 LOADING DOSES ON DAY 0, 14, 28, AND 63
     Route: 037
     Dates: start: 20201112
  2. SPINRAZA [Suspect]
     Active Substance: NUSINERSEN
     Dosage: 4 LOADING DOSES ON DAY 0, 14, 28, AND 63-MAINTENANCE DOSE ONCE EVERY 4 MONTHS THEREAFTER
     Route: 037
     Dates: start: 20201112

REACTIONS (3)
  - Dysphagia [Not Recovered/Not Resolved]
  - Stoma site haemorrhage [Recovered/Resolved]
  - Gastric ulcer [Recovered/Resolved]

NARRATIVE: CASE EVENT DATE: 20210219
